FAERS Safety Report 4596528-4 (Version None)
Quarter: 2005Q1

REPORT INFORMATION
  Report Type: 
  Country: None (occurrence: None)
  Receive Date: 20050228
  Receipt Date: 20050221
  Transmission Date: 20050727
  Serious: Yes (Death, Other)
  Sender: FDA-Public Use
  Company Number: 2005-02-1275

PATIENT
  Age: 63 Year
  Sex: Male

DRUGS (3)
  1. TEMODAL [Suspect]
     Indication: GLIOBLASTOMA MULTIFORME
     Dosage: 380 MG QD ORAL
     Route: 048
     Dates: start: 20030908, end: 20030912
  2. DEPAKENE [Concomitant]
  3. OMEPRAZOLE [Concomitant]

REACTIONS (2)
  - LYMPHOPENIA [None]
  - PNEUMONIA STAPHYLOCOCCAL [None]
